FAERS Safety Report 6456327-5 (Version None)
Quarter: 2009Q4

REPORT INFORMATION
  Report Type: 
  Country: None (occurrence: None)
  Receive Date: 20091125
  Receipt Date: 20091117
  Transmission Date: 20100525
  Serious: Yes (Other)
  Sender: FDA-Public Use
  Company Number: BE-ROCHE-670018

PATIENT
  Sex: Female
  Weight: 55 kg

DRUGS (1)
  1. TAMIFLU [Suspect]
     Indication: INFLUENZA
     Route: 048
     Dates: start: 20091001, end: 20091001

REACTIONS (1)
  - ANGIOEDEMA [None]
